FAERS Safety Report 9235201 (Version 1)
Quarter: 2013Q2

REPORT INFORMATION
  Report Type: Spontaneous
  Country: PT (occurrence: PT)
  Receive Date: 20130417
  Receipt Date: 20130417
  Transmission Date: 20140414
  Serious: Yes (Other)
  Sender: FDA-Public Use
  Company Number: PT-009507513-1304PRT007064

PATIENT
  Age: 68 Year
  Sex: Male

DRUGS (1)
  1. JANUVIA [Suspect]
     Dosage: UNK,

REACTIONS (1)
  - Pancreatic carcinoma [Not Recovered/Not Resolved]
